FAERS Safety Report 4609229-0 (Version None)
Quarter: 2005Q1

REPORT INFORMATION
  Report Type: 
  Country: None (occurrence: None)
  Receive Date: 20050311
  Receipt Date: 20050223
  Transmission Date: 20050727
  Serious: Yes (Hospitalization)
  Sender: FDA-Public Use
  Company Number: 2005-00378

PATIENT
  Age: 70 Year
  Sex: Male
  Weight: 93.4 kg

DRUGS (10)
  1. INTEGRILIN [Suspect]
     Dosage: SEE IMAGE
     Route: 042
     Dates: start: 20041217, end: 20041217
  2. INTEGRILIN [Suspect]
     Dosage: SEE IMAGE
     Route: 042
     Dates: start: 20041217, end: 20041218
  3. HEPARIN [Suspect]
     Dosage: 1300.00 UNITS/KG/HR, INTRAVENOUS
     Route: 042
     Dates: start: 20041216, end: 20041217
  4. PLAVIX [Concomitant]
  5. ASPIRIN [Concomitant]
  6. ZESTRIL [Concomitant]
  7. LOPRESSOR [Concomitant]
  8. GLYBURIDE [Concomitant]
  9. LIPITOR [Concomitant]
  10. ZETIA [Concomitant]

REACTIONS (8)
  - ASTHENIA [None]
  - CHEST PAIN [None]
  - DIZZINESS [None]
  - HYPERHIDROSIS [None]
  - INNER EAR DISORDER [None]
  - NAUSEA [None]
  - PALLOR [None]
  - VOMITING [None]
